FAERS Safety Report 5640201-8 (Version None)
Quarter: 2008Q1

REPORT INFORMATION
  Report Type: 
  Country: None (occurrence: None)
  Receive Date: 20080227
  Receipt Date: 20080221
  Transmission Date: 20080703
  Serious: Yes (Hospitalization)
  Sender: FDA-Public Use
  Company Number: US-BAXTER-2008BH000561

PATIENT
  Sex: Male
  Weight: 77 kg

DRUGS (17)
  1. HEPARIN SODIUM [Suspect]
     Indication: CORONARY ARTERY STENOSIS
     Route: 042
     Dates: start: 20080109, end: 20080114
  2. HEPARIN SODIUM [Suspect]
     Indication: THROMBOSIS PROPHYLAXIS
     Route: 042
     Dates: start: 20080109, end: 20080114
  3. HEPARIN SODIUM [Suspect]
     Route: 042
     Dates: start: 20080115, end: 20080115
  4. HEPARIN SODIUM [Suspect]
     Route: 042
     Dates: start: 20080115, end: 20080115
  5. HEPARIN SODIUM [Suspect]
     Route: 058
     Dates: start: 20080118, end: 20080121
  6. HEPARIN SODIUM [Suspect]
     Route: 058
     Dates: start: 20080118, end: 20080121
  7. HEPARIN SODIUM [Suspect]
     Route: 042
     Dates: start: 20080118, end: 20080121
  8. HEPARIN SODIUM [Suspect]
     Route: 042
     Dates: start: 20080118, end: 20080121
  9. ASCORBIC ACID [Concomitant]
     Indication: DRUG USE FOR UNKNOWN INDICATION
     Route: 048
     Dates: start: 20080110, end: 20080115
  10. ASPIRIN [Concomitant]
     Indication: DRUG USE FOR UNKNOWN INDICATION
     Route: 048
     Dates: start: 20080115, end: 20080118
  11. SURFAK [Concomitant]
     Indication: DRUG USE FOR UNKNOWN INDICATION
     Route: 048
     Dates: start: 20080116, end: 20080118
  12. FERATAB [Concomitant]
     Indication: DRUG USE FOR UNKNOWN INDICATION
     Route: 048
     Dates: start: 20080116, end: 20080118
  13. LASIX [Concomitant]
     Indication: DRUG USE FOR UNKNOWN INDICATION
     Route: 042
     Dates: start: 20080117, end: 20080117
  14. VICODIN [Concomitant]
     Indication: DRUG USE FOR UNKNOWN INDICATION
     Dosage: DOSE UNIT:UNKNOWN
     Route: 048
     Dates: start: 20080115, end: 20080118
  15. DARVOCET-N 100 [Concomitant]
     Indication: DRUG USE FOR UNKNOWN INDICATION
     Route: 048
     Dates: start: 20080117, end: 20080117
  16. ZANTAC 150 [Concomitant]
     Indication: DRUG USE FOR UNKNOWN INDICATION
     Route: 048
     Dates: start: 20080116, end: 20080118
  17. ZOCOR [Concomitant]
     Indication: DRUG USE FOR UNKNOWN INDICATION
     Route: 048
     Dates: start: 20080116, end: 20080118

REACTIONS (6)
  - ACUTE RESPIRATORY DISTRESS SYNDROME [None]
  - HYPOTENSION [None]
  - HYPOXIA [None]
  - LEUKOCYTOSIS [None]
  - PNEUMONIA STREPTOCOCCAL [None]
  - SEPTIC SHOCK [None]
